FAERS Safety Report 5712750-5 (Version None)
Quarter: 2008Q2

REPORT INFORMATION
  Report Type: 
  Country: None (occurrence: None)
  Receive Date: 20080422
  Receipt Date: 20080414
  Transmission Date: 20081010
  Serious: Yes (Other)
  Sender: FDA-Public Use
  Company Number: US-JNJFOC-20080404452

PATIENT
  Sex: Male
  Weight: 76.2 kg

DRUGS (6)
  1. FENTANYL TRANSDERMAL SYSTEM [Suspect]
     Indication: BACK PAIN
     Route: 062
  2. CLONAZEPAM [Concomitant]
     Indication: ANXIETY
     Route: 048
  3. PROZAC [Concomitant]
     Indication: DEPRESSION
     Route: 048
  4. METFORMIN HCL [Concomitant]
     Indication: DIABETES MELLITUS
     Route: 048
  5. SYNTHROID [Concomitant]
     Indication: THYROID DISORDER
     Route: 048
  6. PLAVIX [Concomitant]
     Indication: STENT PLACEMENT
     Route: 048

REACTIONS (2)
  - DYSPNOEA [None]
  - HEART RATE INCREASED [None]
